FAERS Safety Report 7629860-8 (Version None)
Quarter: 2011Q3

REPORT INFORMATION
  Report Type: 
  Country: None (occurrence: None)
  Receive Date: 20110722
  Receipt Date: 20110413
  Transmission Date: 20111222
  Serious: No
  Sender: FDA-Public Use
  Company Number: US-MYLANLABS-2011S1007774

PATIENT
  Sex: Male

DRUGS (4)
  1. CLONIDINE HYDROCHLORIDE [Suspect]
     Indication: PANIC DISORDER
     Route: 048
     Dates: start: 20101101, end: 20101201
  2. CLONIDINE HYDROCHLORIDE [Suspect]
     Route: 048
     Dates: start: 20110408
  3. BENAZEPRIL HYDROCHLORIDE [Concomitant]
     Indication: BLOOD PRESSURE INCREASED
  4. AMLODIPINE [Concomitant]
     Indication: BLOOD PRESSURE INCREASED

REACTIONS (2)
  - DRUG INEFFECTIVE FOR UNAPPROVED INDICATION [None]
  - PANIC ATTACK [None]
